FAERS Safety Report 4473857-6 (Version None)
Quarter: 2004Q4

REPORT INFORMATION
  Report Type: 
  Country: None (occurrence: None)
  Receive Date: 20041008
  Receipt Date: 20041008
  Transmission Date: 20050328
  Serious: Yes (Other)
  Sender: FDA-Public Use
  Company Number: None

PATIENT
  Age: 45 Year
  Sex: Female
  Weight: 71.6683 kg

DRUGS (1)
  1. VIOXX [Suspect]
     Indication: PLANTAR FASCIITIS
     Dosage: 25 MG BID ORAL
     Route: 048
     Dates: start: 20021001, end: 20021005

REACTIONS (12)
  - ABASIA [None]
  - ACTIVITIES OF DAILY LIVING IMPAIRED [None]
  - CHEST PAIN [None]
  - GASTRIC HAEMORRHAGE [None]
  - GRIP STRENGTH DECREASED [None]
  - HYPERAESTHESIA [None]
  - IMPAIRED WORK ABILITY [None]
  - INFLAMMATION [None]
  - JOINT SWELLING [None]
  - OEDEMA PERIPHERAL [None]
  - PALPITATIONS [None]
  - WEIGHT INCREASED [None]
